FAERS Safety Report 24860487 (Version 2)
Quarter: 2025Q1

REPORT INFORMATION
  Report Type: Spontaneous
  Country: AU (occurrence: AU)
  Receive Date: 20250120
  Receipt Date: 20250225
  Transmission Date: 20250409
  Serious: Yes (Hospitalization, Other)
  Sender: SANDOZ
  Company Number: None

PATIENT
  Age: 72 Year
  Sex: Male

DRUGS (2)
  1. AZATHIOPRINE [Suspect]
     Active Substance: AZATHIOPRINE
     Indication: Autoimmune hepatitis
     Dosage: 25.000MG QD
     Route: 065
  2. PREDNISOLONE ACETATE [Suspect]
     Active Substance: PREDNISOLONE ACETATE
     Indication: Autoimmune hepatitis
     Dosage: 40.000MG QD
     Route: 065

REACTIONS (4)
  - Myelosuppression [Recovered/Resolved]
  - Febrile neutropenia [Unknown]
  - Condition aggravated [Recovered/Resolved]
  - Off label use [Unknown]
